FAERS Safety Report 8799281 (Version 1)
Quarter: 2012Q4

REPORT INFORMATION
  Report Type: 
  Country: DK (occurrence: DE)
  Receive Date: 20120920
  Receipt Date: 20120920
  Transmission Date: 20130627
  Serious: Yes (Life-Threatening, Hospitalization, Disabling, Other)
  Sender: FDA-Public Use
  Company Number: DE-FRI-1000038760

PATIENT
  Age: 0 Year
  Sex: Female
  Weight: 3.1 kg

DRUGS (2)
  1. ESCITALOPRAM [Suspect]
     Dosage: 20 mg
     Route: 064
  2. ESCITALOPRAM [Suspect]
     Dosage: 10 mg
     Route: 064

REACTIONS (7)
  - Cerebral haemorrhage neonatal [Recovered/Resolved with Sequelae]
  - Subdural haemorrhage neonatal [Not Recovered/Not Resolved]
  - Haemangioma of liver [Unknown]
  - Convulsion [Recovered/Resolved]
  - Hypotonia [Unknown]
  - Small for dates baby [Unknown]
  - Foetal exposure during pregnancy [Recovered/Resolved]
